FAERS Safety Report 4588345-6 (Version None)
Quarter: 2005Q1

REPORT INFORMATION
  Report Type: 
  Country: None (occurrence: None)
  Receive Date: 20050216
  Receipt Date: 20050216
  Transmission Date: 20050727
  Serious: No
  Sender: FDA-Public Use
  Company Number: None

PATIENT
  Age: 45 Year
  Sex: Female
  Weight: 48.9885 kg

DRUGS (1)
  1. VIOXX [Suspect]
     Indication: ARTHROPATHY
     Dosage: 1 TIME A DAY 50 MG
     Dates: start: 20000801, end: 20020530

REACTIONS (2)
  - CARDIAC DISORDER [None]
  - LIVER DISORDER [None]
